FAERS Safety Report 4981358-1 (Version None)
Quarter: 2006Q2

REPORT INFORMATION
  Report Type: 
  Country: None (occurrence: None)
  Receive Date: 20060419
  Receipt Date: 20060406
  Transmission Date: 20061013
  Serious: Yes (Death)
  Sender: FDA-Public Use
  Company Number: 2006048731

PATIENT
  Age: 16 Year
  Sex: Male

DRUGS (2)
  1. DIPHENHYDRAMINE HCL [Suspect]
     Indication: SUICIDE ATTEMPT
     Dosage: UNSPECIFIED, UNKNOWN
     Route: 065
  2. DOXYLAMINE SUCCINATE [Suspect]
     Indication: SUICIDE ATTEMPT
     Dosage: UNSPECIFIED, UNKNOWN
     Route: 065

REACTIONS (2)
  - COMPLETED SUICIDE [None]
  - DRUG TOXICITY [None]
